FAERS Safety Report 10238895 (Version 1)
Quarter: 2014Q2

REPORT INFORMATION
  Report Type: Spontaneous
  Country: CH (occurrence: None)
  Receive Date: 20140612
  Receipt Date: 20140612
  Transmission Date: 20141212
  Serious: Yes (Hospitalization, Other)
  Sender: FDA-Public Use
  Company Number: 20140330

PATIENT
  Sex: 0

DRUGS (1)
  1. VENOFER (IRON SUCROSE INJECTION-VIFOR (IRON SUCROSE INJECTION) 20 MG/ML [Suspect]
     Indication: PRODUCT USED FOR UNKNOWN INDICATION
     Route: 041
     Dates: start: 20140408, end: 20140408

REACTIONS (1)
  - Cardiac arrest [None]
